FAERS Safety Report 8301842-2 (Version None)
Quarter: 2012Q2

REPORT INFORMATION
  Report Type: 
  Country: None (occurrence: None)
  Receive Date: 20120420
  Receipt Date: 20120416
  Transmission Date: 20120825
  Serious: Yes (Death)
  Sender: FDA-Public Use
  Company Number: FR-ASTRAZENECA-2012SE24965

PATIENT
  Age: 28 Year
  Sex: Female

DRUGS (11)
  1. ZYPREXA [Concomitant]
     Route: 048
     Dates: end: 20111116
  2. QUETIAPINE FUMARATE [Suspect]
     Indication: SCHIZOPHRENIA
     Route: 048
     Dates: start: 20111212, end: 20111219
  3. TERCIAN [Suspect]
     Indication: SCHIZOPHRENIA
     Route: 048
     Dates: end: 20111116
  4. TERCIAN [Suspect]
     Route: 048
     Dates: start: 20111220, end: 20111221
  5. HALDOL [Concomitant]
     Route: 048
     Dates: start: 20111031, end: 20111116
  6. QUETIAPINE FUMARATE [Suspect]
     Route: 048
     Dates: start: 20111220
  7. ATARAX [Suspect]
     Route: 048
     Dates: start: 20111215
  8. ATARAX [Suspect]
     Route: 048
     Dates: start: 20111116, end: 20111212
  9. TERCIAN [Suspect]
     Route: 048
     Dates: start: 20111222
  10. ATARAX [Suspect]
     Indication: SCHIZOPHRENIA
     Route: 048
     Dates: start: 20110919, end: 20111115
  11. TEGRETOL [Concomitant]
     Route: 048
     Dates: start: 20110715, end: 20111031

REACTIONS (4)
  - CONSTIPATION [None]
  - INTESTINAL DILATATION [None]
  - GASTROINTESTINAL NECROSIS [None]
  - CARDIAC ARREST [None]
